FAERS Safety Report 4928366-4 (Version None)
Quarter: 2006Q1

REPORT INFORMATION
  Report Type: 
  Country: None (occurrence: None)
  Receive Date: 20060228
  Receipt Date: 20060222
  Transmission Date: 20060701
  Serious: Yes (Hospitalization)
  Sender: FDA-Public Use
  Company Number: GB-MERCK-0602GBR00128

PATIENT
  Age: 86 Year
  Sex: Female

DRUGS (4)
  1. ZOCOR [Suspect]
     Route: 048
     Dates: end: 20060125
  2. TERBINAFINE [Suspect]
     Indication: NAIL INFECTION
     Route: 048
     Dates: start: 20060111, end: 20060124
  3. LEVOTHYROXINE SODIUM [Concomitant]
     Indication: HYPOTHYROIDISM
     Route: 048
  4. ATENOLOL [Concomitant]
     Indication: HYPERTENSION
     Route: 048
     Dates: end: 20060125

REACTIONS (5)
  - ASTHENIA [None]
  - DRUG INTERACTION [None]
  - MALAISE [None]
  - MYOPATHY [None]
  - NIGHT SWEATS [None]
